FAERS Safety Report 7345197-9 (Version None)
Quarter: 2011Q1

REPORT INFORMATION
  Report Type: 
  Country: None (occurrence: None)
  Receive Date: 20110310
  Receipt Date: 20110307
  Transmission Date: 20110831
  Serious: Yes (Hospitalization, Other)
  Sender: FDA-Public Use
  Company Number: US-PFIZER INC-2010174667

PATIENT
  Sex: Female

DRUGS (13)
  1. ABILIFY [Concomitant]
     Indication: POST-TRAUMATIC STRESS DISORDER
     Dosage: UNK
     Dates: start: 20070215, end: 20090701
  2. KLONOPIN [Concomitant]
     Indication: ANXIETY
  3. SALBUTAMOL [Concomitant]
     Indication: ASTHMA
     Dosage: UNK
     Dates: start: 20080209, end: 20081001
  4. INSULIN [Concomitant]
     Indication: TYPE 1 DIABETES MELLITUS
     Dosage: UNK
     Dates: start: 19830101
  5. AMOXICILLIN [Concomitant]
     Indication: PNEUMONIA
  6. AMOXICILLIN [Concomitant]
     Indication: URINARY TRACT INFECTION
  7. SEROQUEL [Concomitant]
     Indication: POST-TRAUMATIC STRESS DISORDER
  8. CHANTIX [Suspect]
     Indication: SMOKING CESSATION THERAPY
     Dosage: 0.5-1MG, UNK
     Dates: start: 20080324, end: 20080501
  9. NEURONTIN [Concomitant]
     Indication: POST-TRAUMATIC STRESS DISORDER
     Dosage: UNK
     Dates: start: 20080125
  10. SEROQUEL [Concomitant]
     Indication: DEPRESSION
     Dosage: UNK
     Dates: start: 20070507, end: 20090101
  11. PROZAC [Concomitant]
     Indication: DEPRESSION
     Dosage: UNK
     Dates: start: 20051215, end: 20080701
  12. KLONOPIN [Concomitant]
     Indication: DEPRESSION
     Dosage: UNK
     Dates: start: 20051020
  13. AMOXICILLIN [Concomitant]
     Indication: BRONCHITIS
     Dosage: UNK
     Dates: start: 20060806, end: 20081101

REACTIONS (6)
  - DEPRESSION [None]
  - ANXIETY [None]
  - INTENTIONAL OVERDOSE [None]
  - MENTAL DISORDER [None]
  - SUICIDE ATTEMPT [None]
  - EMOTIONAL DISTRESS [None]
